FAERS Safety Report 4795782-3 (Version None)
Quarter: 2005Q3

REPORT INFORMATION
  Report Type: 
  Country: None (occurrence: None)
  Receive Date: 20050929
  Receipt Date: 20050629
  Transmission Date: 20060218
  Serious: No
  Sender: FDA-Public Use
  Company Number: 05P-163-0304591-00

PATIENT
  Age: 71 Year
  Sex: Female
  Weight: 93.8946 kg

DRUGS (10)
  1. HUMIRA [Suspect]
     Indication: RHEUMATOID ARTHRITIS
     Dosage: 40 MG, 1 IN 2 WK, SUBCUTANEOUS
     Route: 058
     Dates: start: 20050401, end: 20050601
  2. ISOPHANE INSULIN [Concomitant]
  3. INSULIN HUMAN [Concomitant]
  4. LOTREL [Concomitant]
  5. ATENOLOL [Concomitant]
  6. IRBESARTAN [Concomitant]
  7. POTASSIUM [Concomitant]
  8. BUMETANIDE [Concomitant]
  9. PIROXICAM [Concomitant]
  10. HYDROXYCHLOROQUINE PHOSPHATE [Concomitant]

REACTIONS (1)
  - RASH PAPULAR [None]
